FAERS Safety Report 23431602 (Version 2)
Quarter: 2024Q1

REPORT INFORMATION
  Report Type: Spontaneous
  Country: FR (occurrence: FR)
  Receive Date: 20240123
  Receipt Date: 20240207
  Transmission Date: 20240409
  Serious: Yes (Death, Life-Threatening, Hospitalization, Other)
  Sender: FDA-Public Use
  Company Number: None

PATIENT
  Age: 91 Year
  Sex: Male
  Weight: 72 kg

DRUGS (3)
  1. FLUINDIONE [Suspect]
     Active Substance: FLUINDIONE
     Indication: Atrial fibrillation
     Dosage: 1 DF, QD
     Route: 048
     Dates: end: 20240101
  2. FLUINDIONE [Suspect]
     Active Substance: FLUINDIONE
     Dosage: 1 DF, QD
     Route: 048
     Dates: start: 20240106, end: 20240107
  3. LOVENOX [Suspect]
     Active Substance: ENOXAPARIN SODIUM
     Indication: Atrial fibrillation
     Dosage: 7000 IU, Q12H
     Route: 058
     Dates: start: 20240104, end: 20240107

REACTIONS (3)
  - Shock haemorrhagic [Fatal]
  - Retroperitoneal haematoma [Fatal]
  - Cardiac arrest [Recovered/Resolved]

NARRATIVE: CASE EVENT DATE: 20240107
